FAERS Safety Report 5129496-7 (Version None)
Quarter: 2006Q4

REPORT INFORMATION
  Report Type: 
  Country: None (occurrence: None)
  Receive Date: 20061012
  Receipt Date: 20061003
  Transmission Date: 20070319
  Serious: Yes (Other)
  Sender: FDA-Public Use
  Company Number: 163-20785-06100150

PATIENT
  Age: 76 Year
  Sex: Female

DRUGS (1)
  1. THALOMID [Suspect]
     Indication: MULTIPLE MYELOMA
     Dosage: 50MG - 300MG, DAILY, ORAL
     Route: 048
     Dates: start: 20060517

REACTIONS (1)
  - CORONARY ARTERY BYPASS [None]
